FAERS Safety Report 21996793 (Version 1)
Quarter: 2023Q1

REPORT INFORMATION
  Report Type: Spontaneous
  Country: CN (occurrence: CN)
  Receive Date: 20230215
  Receipt Date: 20230215
  Transmission Date: 20230417
  Serious: Yes (Hospitalization)
  Sender: FDA-Public Use
  Company Number: CN-ELI_LILLY_AND_COMPANY-CN202302006073

PATIENT
  Sex: Female

DRUGS (1)
  1. BARICITINIB [Suspect]
     Active Substance: BARICITINIB
     Indication: Pneumonia
     Dosage: 4 MG, DAILY
     Route: 048
     Dates: start: 20230106, end: 20230113

REACTIONS (4)
  - Myelosuppression [Not Recovered/Not Resolved]
  - Acinetobacter infection [Not Recovered/Not Resolved]
  - Candida infection [Not Recovered/Not Resolved]
  - Off label use [Unknown]
